FAERS Safety Report 9744835 (Version 3)
Quarter: 2016Q1

REPORT INFORMATION
  Report Type: Report from Study
  Country: FR (occurrence: FR)
  Receive Date: 20131211
  Receipt Date: 20160323
  Transmission Date: 20160526
  Serious: Yes (Other)
  Sender: FDA-Public Use
  Company Number: FR-ROCHE-1315879

PATIENT
  Age: 74 Year
  Sex: Male
  Weight: 78 kg

DRUGS (7)
  1. RITUXIMAB [Suspect]
     Active Substance: RITUXIMAB
     Indication: MANTLE CELL LYMPHOMA
     Dosage: CYCLE 1 ON 19/DEC/2012, CYCLE 2 IN  JUN/2013, CYCLE 3 IN FEB/2013 AND CYCLE 4 ON 12/MAR/2013, IN APR
     Route: 042
     Dates: start: 20121219, end: 20130521
  2. BENDAMUSTINE [Suspect]
     Active Substance: BENDAMUSTINE
     Dosage: ON D1 AND D2
     Route: 042
  3. BORTEZOMIB [Suspect]
     Active Substance: BORTEZOMIB
     Indication: MANTLE CELL LYMPHOMA
     Dosage: CYCLE 1 ON 19/DEC/2012, CYCLE 2 IN  JUN/2013, CYCLE 3 IN FEB/2013 AND CYCLE 4 ON 12/MAR/2013, IN APR
     Route: 058
     Dates: start: 20121219, end: 20130531
  4. BENDAMUSTINE [Suspect]
     Active Substance: BENDAMUSTINE
     Indication: MANTLE CELL LYMPHOMA
     Dosage: CYCLE 1 ON 19/DEC/2012, CYCLE 2 IN  JUN/2013, CYCLE 3 IN FEB/2013 AND CYCLE 4 ON 12/MAR/2013, IN APR
     Route: 042
     Dates: start: 20121219, end: 20130521
  5. VALSARTAN. [Concomitant]
     Active Substance: VALSARTAN
     Indication: HYPERTENSION
  6. DEXAMETHASONE. [Suspect]
     Active Substance: DEXAMETHASONE
     Indication: MANTLE CELL LYMPHOMA
     Dosage: CYCLE 1 ON 19/DEC/2012, CYCLE 2 IN  JUN/2013, CYCLE 3 IN FEB/2013 ANDCYCLE 4 ON 12/MAR/2013, IN APR/
     Route: 041
     Dates: start: 20121220, end: 20130522
  7. BORTEZOMIB [Suspect]
     Active Substance: BORTEZOMIB
     Dosage: ON D1 D4 D8 AND D11
     Route: 058

REACTIONS (1)
  - Polyneuropathy [Recovering/Resolving]

NARRATIVE: CASE EVENT DATE: 20130403
